FAERS Safety Report 6028062-9 (Version None)
Quarter: 2009Q1

REPORT INFORMATION
  Report Type: 
  Country: None (occurrence: None)
  Receive Date: 20090102
  Receipt Date: 20081217
  Transmission Date: 20090719
  Serious: Yes (Other)
  Sender: FDA-Public Use
  Company Number: 2008AP003485

PATIENT
  Age: 59 Year
  Sex: Female

DRUGS (9)
  1. CITALOPRAM HYDROBROMIDE [Suspect]
     Indication: ANXIETY
     Dosage: 20 MG;QD;PO; 10 MG; PO
     Route: 048
     Dates: start: 20081205, end: 20081208
  2. CITALOPRAM HYDROBROMIDE [Suspect]
     Indication: ANXIETY
     Dosage: 20 MG;QD;PO; 10 MG; PO
     Route: 048
     Dates: start: 20080827
  3. SIMVASTATIN [Concomitant]
  4. LEVOTHYROXINE SODIUM [Concomitant]
  5. RALOXIFENE HCL [Concomitant]
  6. HYDROCHLORIDE [Concomitant]
  7. SERTRALINE [Concomitant]
  8. ESCITALOPRAM [Concomitant]
  9. ALPRAZOLAM [Concomitant]

REACTIONS (5)
  - AMNESIA [None]
  - DIZZINESS [None]
  - DRUG INEFFECTIVE [None]
  - FLIGHT OF IDEAS [None]
  - NIGHTMARE [None]
